FAERS Safety Report 23338697 (Version 1)
Quarter: 2023Q4

REPORT INFORMATION
  Report Type: Spontaneous
  Country: US (occurrence: US)
  Receive Date: 20231226
  Receipt Date: 20231226
  Transmission Date: 20240110
  Serious: Yes (Death, Other)
  Sender: FDA-Public Use
  Company Number: US-BRISTOL-MYERS SQUIBB COMPANY-2023-186127

PATIENT
  Age: 80 Year
  Sex: Male
  Weight: 75.75 kg

DRUGS (1)
  1. REVLIMID [Suspect]
     Active Substance: LENALIDOMIDE
     Indication: Product used for unknown indication
     Dosage: 3W ON 1W OFF
     Route: 048
     Dates: start: 20230901

REACTIONS (1)
  - Death [Fatal]
